FAERS Safety Report 11430743 (Version 1)
Quarter: 2015Q3

REPORT INFORMATION
  Report Type: Spontaneous
  Country: US (occurrence: US)
  Receive Date: 20150828
  Receipt Date: 20150828
  Transmission Date: 20151125
  Serious: No
  Sender: FDA-Public Use
  Company Number: PHEH2015US006927

PATIENT
  Sex: Female

DRUGS (1)
  1. VIVELLE DOT [Suspect]
     Active Substance: ESTRADIOL
     Indication: PRODUCT USED FOR UNKNOWN INDICATION
     Dosage: 0.1 OT, BIW
     Route: 065
     Dates: start: 2008

REACTIONS (5)
  - Malaise [Unknown]
  - Depression [Unknown]
  - Asthenia [Unknown]
  - Arthralgia [Unknown]
  - Drug ineffective [Unknown]
